FAERS Safety Report 4391803-0 (Version None)
Quarter: 2004Q3

REPORT INFORMATION
  Report Type: 
  Country: None (occurrence: None)
  Receive Date: 20040701
  Receipt Date: 20040625
  Transmission Date: 20050211
  Serious: Yes (Hospitalization)
  Sender: FDA-Public Use
  Company Number: 002#1#2003-00014

PATIENT
  Sex: Male

DRUGS (1)
  1. UNIVASC [Suspect]
     Indication: HYPERTENSION
     Dosage: ORAL
     Route: 048

REACTIONS (3)
  - DRUG INEFFECTIVE [None]
  - HYPERTENSIVE CRISIS [None]
  - TREATMENT NONCOMPLIANCE [None]
